FAERS Safety Report 16545931 (Version 5)
Quarter: 2022Q3

REPORT INFORMATION
  Report Type: Report from Study
  Country: DE (occurrence: DE)
  Receive Date: 20190709
  Receipt Date: 20220920
  Transmission Date: 20221026
  Serious: Yes (Hospitalization)
  Sender: FDA-Public Use
  Company Number: DE-002147023-PHHY2019DE150390

PATIENT

DRUGS (20)
  1. RUXOLITINIB [Suspect]
     Active Substance: RUXOLITINIB
     Indication: Primary myelofibrosis
     Dosage: 15 MG, BID
     Route: 048
     Dates: start: 20190401
  2. RUXOLITINIB [Suspect]
     Active Substance: RUXOLITINIB
     Dosage: 30 MG, BID
     Route: 048
     Dates: start: 20190401
  3. RUXOLITINIB [Suspect]
     Active Substance: RUXOLITINIB
     Dosage: 20 MG, BID
     Route: 048
     Dates: start: 20190613, end: 20190625
  4. RUXOLITINIB [Suspect]
     Active Substance: RUXOLITINIB
     Dosage: 20 MG, BID
     Route: 048
     Dates: start: 20190702, end: 20190911
  5. RUXOLITINIB [Suspect]
     Active Substance: RUXOLITINIB
     Dosage: 10 MG, BID
     Route: 048
     Dates: start: 20190911, end: 20191009
  6. RUXOLITINIB [Suspect]
     Active Substance: RUXOLITINIB
     Dosage: 20 MG, QD
     Route: 048
     Dates: start: 20191009, end: 20191112
  7. RUXOLITINIB [Suspect]
     Active Substance: RUXOLITINIB
     Dosage: 30 MG, BID
     Route: 048
     Dates: start: 20191112, end: 20191126
  8. RUXOLITINIB [Suspect]
     Active Substance: RUXOLITINIB
     Dosage: 20 MG, BID
     Route: 048
     Dates: start: 20191126, end: 20191210
  9. RUXOLITINIB [Suspect]
     Active Substance: RUXOLITINIB
     Dosage: 30 MG, BID
     Route: 048
     Dates: start: 20191211
  10. ALLOPURINOL [Concomitant]
     Active Substance: ALLOPURINOL
     Indication: Hyperuricaemia
     Dosage: 300 MG, QD (PER DAY)
     Route: 048
     Dates: start: 20160418
  11. LEVOTHYROXINE SODIUM\POTASSIUM IODIDE [Concomitant]
     Active Substance: LEVOTHYROXINE SODIUM\POTASSIUM IODIDE
     Indication: Thyroid disorder
     Dosage: 75 UG, QD (PER DAY)
     Route: 065
  12. EDOXABAN TOSYLATE [Concomitant]
     Active Substance: EDOXABAN TOSYLATE
     Indication: Thrombosis
     Dosage: 60 MG, QD (PER DAY)
     Route: 065
  13. RAMIPRIL [Concomitant]
     Active Substance: RAMIPRIL
     Indication: Hypertension
     Dosage: 5 MG, QD (PER DAY)
     Route: 065
  14. SPIRONOLACTONE [Concomitant]
     Active Substance: SPIRONOLACTONE
     Indication: Hypertension
     Dosage: 50 MG, QD (PER DAY)
     Route: 065
  15. TORSEMIDE [Concomitant]
     Active Substance: TORSEMIDE
     Indication: Hypertension
     Dosage: 20 MG, QD (PER DAY)
     Route: 065
  16. HYDROXYUREA [Concomitant]
     Active Substance: HYDROXYUREA
     Indication: Myelofibrosis
     Dosage: 500 MG, QD (PER DAY)
     Route: 065
  17. NALOXONE HYDROCHLORIDE\TILIDINE HYDROCHLORIDE [Concomitant]
     Active Substance: NALOXONE HYDROCHLORIDE\TILIDINE HYDROCHLORIDE
     Indication: Pain
     Dosage: 50/4 MG (PER DAY)
     Route: 065
  18. BENSERAZIDE\LEVODOPA [Concomitant]
     Active Substance: BENSERAZIDE\LEVODOPA
     Indication: Restless legs syndrome
     Dosage: 100/25 MG  (PER DAY)
     Route: 065
  19. VALPROATE SODIUM [Concomitant]
     Active Substance: VALPROATE SODIUM
     Indication: Epilepsy
     Dosage: 1500 MG, QD (PER DAY)
     Route: 065
  20. PANTOPRAZOLE [Concomitant]
     Active Substance: PANTOPRAZOLE
     Indication: Gastritis
     Dosage: 40 MG, QD (PER DAY)
     Route: 065

REACTIONS (32)
  - Agranulocytosis [Recovered/Resolved]
  - Blood albumin decreased [Unknown]
  - Blood alkaline phosphatase increased [Unknown]
  - Back pain [Unknown]
  - Band neutrophil percentage increased [Unknown]
  - Basophil percentage increased [Unknown]
  - C-reactive protein increased [Unknown]
  - Red cell distribution width increased [Unknown]
  - Red blood cell count increased [Unknown]
  - Light chain analysis increased [Unknown]
  - Gamma-glutamyltransferase increased [Unknown]
  - Haematocrit increased [Recovered/Resolved]
  - International normalised ratio decreased [Unknown]
  - Blood immunoglobulin G increased [Unknown]
  - Light chain analysis decreased [Unknown]
  - Lymphocyte percentage decreased [Unknown]
  - Mean cell haemoglobin decreased [Unknown]
  - Mean cell haemoglobin concentration decreased [Unknown]
  - Mean cell volume decreased [Unknown]
  - Metamyelocyte percentage increased [Unknown]
  - Monocyte percentage decreased [Unknown]
  - Myelocyte percentage increased [Unknown]
  - N-terminal prohormone brain natriuretic peptide increased [Unknown]
  - Erythroblast count increased [Unknown]
  - Abdominal pain upper [Recovered/Resolved]
  - Promyelocyte count increased [Unknown]
  - Neutrophil percentage decreased [Unknown]
  - Bone pain [Recovered/Resolved]
  - Pyrexia [Recovered/Resolved]
  - Tonsillitis [Recovered/Resolved]
  - Blood uric acid increased [Unknown]
  - Weight decreased [Recovered/Resolved]

NARRATIVE: CASE EVENT DATE: 20190401
